FAERS Safety Report 11587684 (Version 1)
Quarter: 2015Q4

REPORT INFORMATION
  Report Type: Spontaneous
  Country: US (occurrence: US)
  Receive Date: 20151001
  Receipt Date: 20151001
  Transmission Date: 20160304
  Serious: No
  Sender: FDA-Public Use
  Company Number: US-LUNDBECK-DKLU2003770

PATIENT
  Age: 82 Year
  Sex: Male

DRUGS (3)
  1. NORTHERA [Suspect]
     Active Substance: DROXIDOPA
     Route: 065
     Dates: end: 20150920
  2. NORTHERA [Suspect]
     Active Substance: DROXIDOPA
     Indication: PRODUCT USED FOR UNKNOWN INDICATION
     Route: 065
  3. NORTHERA [Suspect]
     Active Substance: DROXIDOPA
     Route: 065
     Dates: start: 20150901

REACTIONS (7)
  - Drug dose omission [Recovered/Resolved]
  - Hypotension [Unknown]
  - Inappropriate schedule of drug administration [Recovered/Resolved]
  - Dyskinesia [Unknown]
  - Fall [Recovered/Resolved]
  - Fatigue [Unknown]
  - Blood pressure increased [Unknown]

NARRATIVE: CASE EVENT DATE: 20150827
